FAERS Safety Report 11183632 (Version 1)
Quarter: 2015Q2

REPORT INFORMATION
  Report Type: Spontaneous
  Country: US (occurrence: None)
  Receive Date: 20150610
  Receipt Date: 20150610
  Transmission Date: 20150821
  Serious: No
  Sender: FDA-Public Use
  Company Number: None

PATIENT
  Age: 64 Year
  Sex: Female
  Weight: 70.31 kg

DRUGS (5)
  1. OMEPRAZOLE. [Suspect]
     Active Substance: OMEPRAZOLE
     Indication: GASTROOESOPHAGEAL REFLUX DISEASE
     Dosage: 2 PILLS TWICE DAILY TAKEN BY MOUTH
     Route: 048
     Dates: start: 20150324, end: 20150326
  2. LEXAPRO [Concomitant]
     Active Substance: ESCITALOPRAM OXALATE
  3. ZYRTEC [Concomitant]
     Active Substance: CETIRIZINE HYDROCHLORIDE
  4. LOSARTAN POTASSIUM. [Concomitant]
     Active Substance: LOSARTAN POTASSIUM
  5. VITAMIN B [Concomitant]
     Active Substance: VITAMIN B

REACTIONS (4)
  - Product substitution issue [None]
  - Product quality issue [None]
  - Dyspepsia [None]
  - Nausea [None]

NARRATIVE: CASE EVENT DATE: 20150324
